FAERS Safety Report 9158216 (Version 1)
Quarter: 2013Q1

REPORT INFORMATION
  Report Type: Report from Study
  Country: DE (occurrence: DE)
  Receive Date: 20130312
  Receipt Date: 20130312
  Transmission Date: 20140127
  Serious: Yes (Hospitalization)
  Sender: FDA-Public Use
  Company Number: DE-BRISTOL-MYERS SQUIBB COMPANY-17438870

PATIENT
  Age: 75 Year
  Sex: Female
  Weight: 60 kg

DRUGS (3)
  1. CARBOPLATIN [Suspect]
     Indication: OVARIAN CANCER
     Dosage: LAST DOSE:10OCT12,31JUL12,10OCT12
     Route: 042
     Dates: start: 20120731
  2. PACLITAXEL [Suspect]
     Indication: OVARIAN CANCER
     Dosage: LAST DOSE:10OCT12,31JUL12,10OCT12
     Dates: start: 20120731
  3. BEVACIZUMAB [Suspect]
     Indication: OVARIAN CANCER
     Dosage: LAST DOSE:10OCT12,31JUL12,10OCT12
     Dates: start: 20120731

REACTIONS (4)
  - Ileus [Recovering/Resolving]
  - Subileus [Recovering/Resolving]
  - Abdominal pain [Recovered/Resolved]
  - Asthenia [Recovered/Resolved]
